FAERS Safety Report 10594108 (Version 1)
Quarter: 2014Q4

REPORT INFORMATION
  Report Type: Spontaneous
  Country: PT (occurrence: PT)
  Receive Date: 20141119
  Receipt Date: 20141119
  Transmission Date: 20150529
  Serious: Yes (Other)
  Sender: FDA-Public Use
  Company Number: PT-BANPHARM-20143224

PATIENT
  Age: 58 Year
  Sex: Female

DRUGS (1)
  1. DIPHENHYDRAMINE UNKNOWN PRODUCT [Suspect]
     Active Substance: DIPHENHYDRAMINE

REACTIONS (9)
  - Pruritus [Recovered/Resolved]
  - Face oedema [Recovered/Resolved]
  - Product formulation issue [None]
  - Photosensitivity reaction [None]
  - Exposure via partner [None]
  - Eczema [Recovered/Resolved]
  - Dermatitis contact [Recovered/Resolved]
  - Rash erythematous [Recovered/Resolved]
  - Blister [Recovered/Resolved]
